FAERS Safety Report 13337215 (Version 1)
Quarter: 2017Q1

REPORT INFORMATION
  Report Type: Spontaneous
  Country: RS (occurrence: RS)
  Receive Date: 20170315
  Receipt Date: 20170315
  Transmission Date: 20170428
  Serious: Yes (Other)
  Sender: FDA-Public Use
  Company Number: RS-AMGEN-SRBSP2017037847

PATIENT
  Age: 41 Year
  Sex: Female

DRUGS (27)
  1. METHOTREXATE. [Suspect]
     Active Substance: METHOTREXATE
     Dosage: 15 MG, UNK
     Route: 058
     Dates: start: 201601
  2. ACTEMRA [Suspect]
     Active Substance: TOCILIZUMAB
     Indication: RHEUMATOID ARTHRITIS
     Dosage: 520 MG, UNK
     Route: 042
     Dates: start: 201502, end: 2016
  3. FOLNAK [Concomitant]
     Active Substance: FOLIC ACID
     Dosage: 5 MG, UNK
     Dates: start: 200903
  4. METHOTREXATE. [Suspect]
     Active Substance: METHOTREXATE
     Indication: RHEUMATOID ARTHRITIS
     Dosage: UNK
     Route: 065
  5. DIPROPHOS Z INJEKTION [Concomitant]
     Dosage: UNK
     Route: 030
     Dates: start: 201212
  6. METHOTREXATE. [Suspect]
     Active Substance: METHOTREXATE
     Dosage: 15 MG, WEEKLY
     Route: 065
     Dates: start: 200903
  7. PRONISON [Concomitant]
     Active Substance: PREDNISONE
     Indication: RHEUMATOID ARTHRITIS
     Dosage: 20 MG, UNK
     Dates: start: 201409
  8. SALAZOPYRIN [Concomitant]
     Active Substance: SULFASALAZINE
     Indication: RHEUMATOID ARTHRITIS
     Dosage: 1 G, UNK
     Dates: start: 201508
  9. CALCIUM [Concomitant]
     Active Substance: CALCIUM
     Dosage: UNK
     Dates: start: 200904
  10. PRONISON [Concomitant]
     Active Substance: PREDNISONE
     Dosage: 15/10MG
     Dates: start: 201510
  11. METHOTREXATE. [Suspect]
     Active Substance: METHOTREXATE
     Dosage: 17.5 / 15 MG, WEEKLY
     Route: 065
     Dates: start: 201206
  12. VITAMIN D [Concomitant]
     Active Substance: CHOLECALCIFEROL
     Dosage: UNK
     Dates: start: 200904
  13. PRONISON [Concomitant]
     Active Substance: PREDNISONE
     Dosage: 10/15 MG UNKNOWN
     Dates: start: 201506
  14. ENBREL [Suspect]
     Active Substance: ETANERCEPT
     Dosage: 50MG , UNK
     Route: 058
     Dates: start: 201306, end: 201501
  15. METHOTREXATE. [Suspect]
     Active Substance: METHOTREXATE
     Dosage: 17.5 MG, WEEKLY
     Route: 065
     Dates: start: 200904
  16. RESOCHIN [Concomitant]
     Active Substance: NIFEDIPINE
     Indication: RHEUMATOID ARTHRITIS
     Dosage: 250 MG, UNK
     Dates: start: 200903, end: 200909
  17. CONTROLOC [Concomitant]
     Active Substance: PANTOPRAZOLE SODIUM
     Dosage: 20 MG, UNK
     Dates: start: 200904
  18. PRONISON [Concomitant]
     Active Substance: PREDNISONE
     Dosage: 20 MG, UNK
     Dates: start: 201508
  19. PRONISON [Concomitant]
     Active Substance: PREDNISONE
     Dosage: 20 MG, UNK
     Dates: start: 201603
  20. DIPROPHOS Z INJEKTION [Concomitant]
     Indication: RHEUMATOID ARTHRITIS
     Dosage: UNK UNK, MONTHLY
     Route: 030
     Dates: start: 200903, end: 200909
  21. PRONISON [Concomitant]
     Active Substance: PREDNISONE
     Dosage: 10 UNK, UNK
     Dates: start: 201504
  22. PRONISON [Concomitant]
     Active Substance: PREDNISONE
     Dosage: 15 MG, UNK
     Dates: start: 201601
  23. ENBREL [Suspect]
     Active Substance: ETANERCEPT
     Indication: RHEUMATOID ARTHRITIS
     Dosage: 50 MG, WEEKLY
     Route: 058
     Dates: start: 20090728, end: 201303
  24. METHOTREXATE. [Suspect]
     Active Substance: METHOTREXATE
     Dosage: 15 MG, WEEKLY
     Route: 065
     Dates: start: 200911, end: 201001
  25. METHOTREXATE. [Suspect]
     Active Substance: METHOTREXATE
     Dosage: 10 MG, WEEKLY
     Route: 065
     Dates: start: 201003
  26. DIKLOFENAK [Concomitant]
     Active Substance: DICLOFENAC SODIUM
     Indication: RHEUMATOID ARTHRITIS
     Dosage: UNK UNK, 2X/DAY
     Dates: start: 200904
  27. MABTHERA [Concomitant]
     Active Substance: RITUXIMAB
     Indication: RHEUMATOID ARTHRITIS
     Dosage: 1000 MG, UNK
     Dates: start: 201608

REACTIONS (11)
  - Hereditary angioedema [Unknown]
  - Lip swelling [Unknown]
  - Joint swelling [Unknown]
  - Bone erosion [Unknown]
  - Injection site erythema [Recovered/Resolved]
  - Asphyxia [Unknown]
  - Drug intolerance [Unknown]
  - Injection site pruritus [Recovered/Resolved]
  - Eyelid oedema [Unknown]
  - Transaminases increased [Unknown]
  - Drug ineffective [Unknown]

NARRATIVE: CASE EVENT DATE: 200909
